FAERS Safety Report 7270241-7 (Version None)
Quarter: 2011Q1

REPORT INFORMATION
  Report Type: 
  Country: None (occurrence: None)
  Receive Date: 20110125
  Receipt Date: 20110125
  Transmission Date: 20110831
  Serious: Yes (Hospitalization, Other)
  Sender: FDA-Public Use
  Company Number: None

PATIENT
  Sex: Female
  Weight: 2.33 kg

DRUGS (2)
  1. DIOVAN [Suspect]
     Indication: HEART VALVE REPLACEMENT
     Dosage: 40 MG DAILY PO
     Route: 048
     Dates: start: 20100301, end: 20110103
  2. DIOVAN [Suspect]
     Indication: DECREASED VENTRICULAR AFTERLOAD
     Dosage: 40 MG DAILY PO
     Route: 048
     Dates: start: 20100301, end: 20110103

REACTIONS (5)
  - MATERNAL DRUGS AFFECTING FOETUS [None]
  - OLIGOHYDRAMNIOS [None]
  - NEONATAL RESPIRATORY DISTRESS SYNDROME [None]
  - RENAL IMPAIRMENT [None]
  - PREMATURE BABY [None]
